FAERS Safety Report 4897258-1 (Version None)
Quarter: 2005Q4

REPORT INFORMATION
  Report Type: 
  Country: None (occurrence: None)
  Receive Date: 20051223
  Receipt Date: 20050930
  Transmission Date: 20060501
  Serious: No
  Sender: FDA-Public Use
  Company Number: 05P-163-0312579-00

PATIENT
  Age: 72 Year
  Sex: Female
  Weight: 68.0396 kg

DRUGS (11)
  1. HUMIRA [Suspect]
     Indication: RHEUMATOID ARTHRITIS
     Dosage: 40 MG,  1 IN 2 WK, SUBCUTANEOUS
     Route: 058
     Dates: start: 20040101, end: 20040101
  2. HUMIRA [Suspect]
     Indication: RHEUMATOID ARTHRITIS
     Dosage: 40 MG,  1 IN 2 WK, SUBCUTANEOUS
     Route: 058
     Dates: start: 20050919
  3. FENTANYL [Concomitant]
  4. PRDNISONE [Concomitant]
  5. ULTRACET [Concomitant]
  6. HYDROCODONE BITARTRATE [Concomitant]
  7. SERTRALINE HYDROCHLORIDE [Concomitant]
  8. LORAZEPAM [Concomitant]
  9. FAMOTIDINE [Concomitant]
  10. CALCOIUM [Concomitant]
  11. FORTEO [Concomitant]

REACTIONS (2)
  - OEDEMA PERIPHERAL [None]
  - URTICARIA [None]
